FAERS Safety Report 7152019-8 (Version None)
Quarter: 2010Q4

REPORT INFORMATION
  Report Type: 
  Country: None (occurrence: None)
  Receive Date: 20101123
  Receipt Date: 20101108
  Transmission Date: 20110411
  Serious: Yes (Death, Other)
  Sender: FDA-Public Use
  Company Number: 2010004577

PATIENT
  Age: 80 Year
  Sex: Male
  Weight: 70 kg

DRUGS (6)
  1. TARCEVA [Suspect]
     Indication: BRONCHIAL CARCINOMA
     Dosage: (150 MG, DAILY), ORAL
     Route: 048
     Dates: start: 20101004, end: 20101025
  2. NEXIUM [Concomitant]
  3. LASIX [Concomitant]
  4. ALDACTONE [Concomitant]
  5. PERINDOPRIL ERBUMINE [Concomitant]
  6. ATARAX [Concomitant]

REACTIONS (5)
  - ABDOMINAL ADHESIONS [None]
  - INTESTINAL OBSTRUCTION [None]
  - MALIGNANT NEOPLASM PROGRESSION [None]
  - METASTATIC NEOPLASM [None]
  - RESPIRATORY FAILURE [None]
